FAERS Safety Report 6142682-2 (Version None)
Quarter: 2009Q2

REPORT INFORMATION
  Report Type: 
  Country: None (occurrence: None)
  Receive Date: 20090403
  Receipt Date: 20071121
  Transmission Date: 20091009
  Serious: Yes (Death)
  Sender: FDA-Public Use
  Company Number: US-ASTRAZENECA-2006UW22719

PATIENT
  Sex: Male
  Weight: 72.6 kg

DRUGS (30)
  1. SEROQUEL [Suspect]
     Dosage: CONTINUED UNTIL 2006 WHEN DECEASED
     Route: 048
  2. ANTABUSE [Concomitant]
  3. LITHIUM CARBONATE [Concomitant]
  4. TOFRANIL [Concomitant]
  5. ZANTAC [Concomitant]
  6. PHISOHEX [Concomitant]
  7. SUDAFED 12 HOUR [Concomitant]
  8. CLEOCIN [Concomitant]
  9. LIBRIUM [Concomitant]
  10. SEPTRA DS [Concomitant]
  11. THIAMINE HCL [Concomitant]
  12. FOLATE [Concomitant]
  13. LORTAB [Concomitant]
  14. XANAX [Concomitant]
  15. IBUPROFEN [Concomitant]
  16. MEPERGAN [Concomitant]
  17. ULTRAM [Concomitant]
  18. TORADOL [Concomitant]
  19. ANAPROX [Concomitant]
  20. TYLOX [Concomitant]
  21. NAPROSYN [Concomitant]
  22. PROCHLORPERAZINE [Concomitant]
  23. SOMA [Concomitant]
  24. DARVOCET [Concomitant]
  25. DOXYCYCLINE [Concomitant]
  26. AMOXICILLIN [Concomitant]
  27. KEFLEX [Concomitant]
  28. BENADRYL [Concomitant]
  29. MYLANTA [Concomitant]
  30. FLEXERIL [Concomitant]

REACTIONS (4)
  - ARRHYTHMIA [None]
  - ARTERIOSCLEROSIS [None]
  - ARTERIOSCLEROSIS CORONARY ARTERY [None]
  - HYPERGLYCAEMIA [None]
